FAERS Safety Report 7403957-X (Version None)
Quarter: 2011Q2

REPORT INFORMATION
  Report Type: 
  Country: None (occurrence: None)
  Receive Date: 20110408
  Receipt Date: 20110326
  Transmission Date: 20111010
  Serious: Yes (Hospitalization)
  Sender: FDA-Public Use
  Company Number: US-CELGENEUS-163-20785-11033636

PATIENT
  Age: 78 Year
  Sex: Female
  Weight: 77.18 kg

DRUGS (2)
  1. THALOMID [Suspect]
     Indication: MULTIPLE MYELOMA
     Dosage: 200 MILLIGRAM
     Route: 048
     Dates: start: 20110128, end: 20110303
  2. DECADRON [Concomitant]
     Indication: MULTIPLE MYELOMA
     Dosage: 20 MILLIGRAM
     Route: 048
     Dates: start: 20110125, end: 20110303

REACTIONS (3)
  - RESPIRATORY DISTRESS [None]
  - HYPERGLYCAEMIA [None]
  - PNEUMONIA [None]
